FAERS Safety Report 24104932 (Version 1)
Quarter: 2024Q3

REPORT INFORMATION
  Report Type: Spontaneous
  Country: US (occurrence: US)
  Receive Date: 20240717
  Receipt Date: 20240717
  Transmission Date: 20241017
  Serious: Yes (Death)
  Sender: LUPIN
  Company Number: US-LUPIN PHARMACEUTICALS INC.-2024-06242

PATIENT
  Age: 31 Year
  Sex: Male

DRUGS (13)
  1. CETIRIZINE [Suspect]
     Active Substance: CETIRIZINE HYDROCHLORIDE
     Indication: Mast cell activation syndrome
     Dosage: UNK
     Route: 065
  2. FAMOTIDINE [Suspect]
     Active Substance: FAMOTIDINE
     Indication: Mast cell activation syndrome
     Dosage: UNK
     Route: 065
  3. MIDOSTAURIN [Suspect]
     Active Substance: MIDOSTAURIN
     Indication: Mastocytic leukaemia
     Dosage: UNK
     Route: 065
  4. EPINEPHRINE [Suspect]
     Active Substance: EPINEPHRINE
     Indication: Mast cell activation syndrome
     Dosage: UNK
     Route: 030
  5. EPINEPHRINE [Suspect]
     Active Substance: EPINEPHRINE
     Dosage: UNK, DRIP
     Route: 065
  6. DIPHENHYDRAMINE [Suspect]
     Active Substance: DIPHENHYDRAMINE
     Indication: Mast cell activation syndrome
     Dosage: UNK
     Route: 065
  7. DEXAMETHASONE [Suspect]
     Active Substance: DEXAMETHASONE
     Indication: Mast cell activation syndrome
     Dosage: UNK
     Route: 065
  8. AVAPRITINIB [Suspect]
     Active Substance: AVAPRITINIB
     Indication: Mastocytic leukaemia
     Dosage: UNK
     Route: 065
  9. IMATINIB [Suspect]
     Active Substance: IMATINIB
     Indication: Mastocytic leukaemia
     Dosage: UNK
     Route: 065
  10. CLADRIBINE [Suspect]
     Active Substance: CLADRIBINE
     Indication: Mastocytic leukaemia
     Dosage: UNK
     Route: 065
  11. FILGRASTIM [Suspect]
     Active Substance: FILGRASTIM
     Indication: Mastocytic leukaemia
     Dosage: UNK
     Route: 065
  12. CYTARABINE [Suspect]
     Active Substance: CYTARABINE
     Indication: Mastocytic leukaemia
     Dosage: UNK
     Route: 065
  13. MITOXANTRONE [Suspect]
     Active Substance: MITOXANTRONE HYDROCHLORIDE
     Indication: Mastocytic leukaemia
     Dosage: UNK
     Route: 065

REACTIONS (3)
  - Drug ineffective for unapproved indication [Fatal]
  - Off label use [Unknown]
  - Drug ineffective [Unknown]
